FAERS Safety Report 8877521 (Version 1)
Quarter: 2012Q4

REPORT INFORMATION
  Report Type: 
  Country: US (occurrence: None)
  Receive Date: 20121026
  Receipt Date: 20121026
  Transmission Date: 20130627
  Serious: Yes (Hospitalization, Other)
  Sender: FDA-Public Use
  Company Number: CLON20120009

PATIENT
  Age: 23 Month
  Sex: Female

DRUGS (1)
  1. CLONIDINE HYDROCHLORIDE [Suspect]
     Indication: PRODUCT USED FOR UNKNOWN INDICATION
     Route: 048
     Dates: start: 201208, end: 201208

REACTIONS (7)
  - Toxicity to various agents [None]
  - Hyperglycaemia [None]
  - Lethargy [None]
  - Apnoea [None]
  - Product substitution issue [None]
  - Bradycardia [None]
  - Anion gap [None]
